FAERS Safety Report 14140773 (Version 2)
Quarter: 2017Q4

REPORT INFORMATION
  Report Type: Report from Study
  Country: US (occurrence: US)
  Receive Date: 20171030
  Receipt Date: 20171121
  Transmission Date: 20180321
  Serious: Yes (Hospitalization, Other)
  Sender: FDA-Public Use
  Company Number: US-BAYER-2017-207150

PATIENT
  Age: 53 Year
  Sex: Male

DRUGS (1)
  1. STIVARGA [Suspect]
     Active Substance: REGORAFENIB
     Indication: COLON CANCER
     Dosage: 160 MG DAILY 21-DAYS ON 7 DAYS OFF AND REPEAT CYCLE AS DIRECTED
     Route: 048
     Dates: start: 20170712, end: 20170922

REACTIONS (2)
  - Neoplasm [None]
  - Hospitalisation [None]
